FAERS Safety Report 18195541 (Version 3)
Quarter: 2021Q1

REPORT INFORMATION
  Report Type: Spontaneous
  Country: US (occurrence: US)
  Receive Date: 20200826
  Receipt Date: 20210120
  Transmission Date: 20210419
  Serious: Yes (Other)
  Sender: FDA-Public Use
  Company Number: US-ASTRAZENECA-2020SF04943

PATIENT
  Age: 21137 Day
  Sex: Male
  Weight: 132.9 kg

DRUGS (42)
  1. OMEPRAZOLE. [Suspect]
     Active Substance: OMEPRAZOLE
     Indication: GASTROINTESTINAL DISORDER
     Dosage: GENERIC20.0MG UNKNOWN
     Route: 065
     Dates: start: 2012
  2. CAPTOPRIL. [Concomitant]
     Active Substance: CAPTOPRIL
  3. AMITRIPTYLINE HCL [Concomitant]
     Active Substance: AMITRIPTYLINE
  4. METRONIDAZOLE. [Concomitant]
     Active Substance: METRONIDAZOLE
  5. LANTUS [Concomitant]
     Active Substance: INSULIN GLARGINE
  6. TOBRAMYCIN. [Concomitant]
     Active Substance: TOBRAMYCIN
  7. AMPICILLIN [Concomitant]
     Active Substance: AMPICILLIN
  8. GLYBURIDE?METFORMIN [Concomitant]
  9. LORATADINE. [Concomitant]
     Active Substance: LORATADINE
  10. TAMSULOSIN [Concomitant]
     Active Substance: TAMSULOSIN
  11. CYCLOBENZAPRINE. [Concomitant]
     Active Substance: CYCLOBENZAPRINE
  12. TRAMADOL HCL [Concomitant]
     Active Substance: TRAMADOL HYDROCHLORIDE
  13. NEXIUM [Suspect]
     Active Substance: ESOMEPRAZOLE MAGNESIUM
     Route: 048
     Dates: start: 2004, end: 2017
  14. NEXIUM [Suspect]
     Active Substance: ESOMEPRAZOLE MAGNESIUM
     Dosage: 20.0MG UNKNOWN
     Route: 048
     Dates: start: 20060103
  15. HYDROCOD/ACETAM [Concomitant]
  16. ZITHROMAX [Concomitant]
     Active Substance: AZITHROMYCIN DIHYDRATE
  17. LEVOFLOXACIN. [Concomitant]
     Active Substance: LEVOFLOXACIN
  18. FEXOFENADINE [Concomitant]
     Active Substance: FEXOFENADINE HYDROCHLORIDE
  19. PATANOL [Concomitant]
     Active Substance: OLOPATADINE HYDROCHLORIDE
  20. ELIQUIS [Concomitant]
     Active Substance: APIXABAN
  21. ZOLPIDEM [Concomitant]
     Active Substance: ZOLPIDEM TARTRATE
  22. LOTREL [Concomitant]
     Active Substance: AMLODIPINE BESYLATE\BENAZEPRIL HYDROCHLORIDE
  23. CEPHALEXIN. [Concomitant]
     Active Substance: CEPHALEXIN
  24. GABAPENTIN. [Concomitant]
     Active Substance: GABAPENTIN
  25. OMEPRAZOLE. [Suspect]
     Active Substance: OMEPRAZOLE
     Indication: GASTROINTESTINAL DISORDER
     Dosage: GENERIC20.0MG UNKNOWN
     Route: 048
     Dates: start: 20120814
  26. METFORMIN [Concomitant]
     Active Substance: METFORMIN HYDROCHLORIDE
  27. TRAMADOL. [Concomitant]
     Active Substance: TRAMADOL
  28. CLARITHROMYCIN. [Concomitant]
     Active Substance: CLARITHROMYCIN
  29. ZOLPIDEM TARTRATE. [Concomitant]
     Active Substance: ZOLPIDEM TARTRATE
  30. VITAMIN D2 [Concomitant]
     Active Substance: ERGOCALCIFEROL
  31. ZOFRAN [Concomitant]
     Active Substance: ONDANSETRON HYDROCHLORIDE
  32. NOVOLOG [Concomitant]
     Active Substance: INSULIN ASPART
  33. NEXIUM [Suspect]
     Active Substance: ESOMEPRAZOLE MAGNESIUM
     Dosage: 20.0MG UNKNOWN
     Route: 048
     Dates: start: 2006, end: 2016
  34. SIMVASTATIN. [Concomitant]
     Active Substance: SIMVASTATIN
  35. AMOXICILLIN. [Concomitant]
     Active Substance: AMOXICILLIN
  36. MOBIC [Concomitant]
     Active Substance: MELOXICAM
  37. TIZANIDINE HCL [Concomitant]
     Active Substance: TIZANIDINE HYDROCHLORIDE
  38. TOLBUTAMIDE. [Concomitant]
     Active Substance: TOLBUTAMIDE
  39. NITROSTAT [Concomitant]
     Active Substance: NITROGLYCERIN
  40. NEXIUM [Suspect]
     Active Substance: ESOMEPRAZOLE MAGNESIUM
     Dosage: GENERIC40.0MG UNKNOWN
     Route: 065
     Dates: start: 2017, end: 2018
  41. NEXIUM [Suspect]
     Active Substance: ESOMEPRAZOLE MAGNESIUM
     Dosage: GENERIC40.0MG UNKNOWN
     Route: 048
     Dates: start: 20171205
  42. METHOCARBAMOL. [Concomitant]
     Active Substance: METHOCARBAMOL

REACTIONS (4)
  - Renal failure [Unknown]
  - Chronic kidney disease [Not Recovered/Not Resolved]
  - Acute kidney injury [Unknown]
  - Renal hypertension [Unknown]

NARRATIVE: CASE EVENT DATE: 20150826
